FAERS Safety Report 4446148-7 (Version None)
Quarter: 2004Q3

REPORT INFORMATION
  Report Type: 
  Country: None (occurrence: None)
  Receive Date: 20040903
  Receipt Date: 20040823
  Transmission Date: 20050211
  Serious: Yes (Hospitalization, Other)
  Sender: FDA-Public Use
  Company Number: 2004058572

PATIENT
  Age: 80 Year
  Sex: Male

DRUGS (5)
  1. LIPITOR [Suspect]
     Indication: BLOOD CHOLESTEROL
     Dosage: 20 MG (20 MG, 1 IN 1 D), ORAL
     Route: 048
     Dates: end: 20040101
  2. CELECOXIB (CELECOXIB) [Suspect]
     Indication: PAIN
     Dosage: ORAL
     Route: 048
     Dates: start: 20040823
  3. IRBESARTAN (IRBESARTAN) [Concomitant]
  4. RABEPRAZOLE SODIUM [Concomitant]
  5. ASPIRIN [Concomitant]

REACTIONS (9)
  - ARTHRALGIA [None]
  - CARDIOMEGALY [None]
  - CAROTID ARTERY OCCLUSION [None]
  - CATHETER SITE PAIN [None]
  - CATHETER SITE RELATED REACTION [None]
  - CONTUSION [None]
  - CORONARY ARTERY OCCLUSION [None]
  - GROIN PAIN [None]
  - MYALGIA [None]
